FAERS Safety Report 8163856-5 (Version None)
Quarter: 2012Q1

REPORT INFORMATION
  Report Type: 
  Country: None (occurrence: None)
  Receive Date: 20120224
  Receipt Date: 20120222
  Transmission Date: 20120608
  Serious: Yes (Life-Threatening)
  Sender: FDA-Public Use
  Company Number: PHHY2012CA001434

PATIENT
  Sex: Male

DRUGS (4)
  1. PROCYCLIDINE HYDROCHLORIDE 2MG TAB [Concomitant]
     Dosage: 5 MG, BID
  2. CLONAZEPAM [Concomitant]
  3. CLOZARIL [Suspect]
     Indication: SCHIZOPHRENIA
     Dosage: 300 MG, PER DAY
     Route: 048
     Dates: start: 19950301, end: 20101220
  4. EFFEXOR XR [Concomitant]
     Dosage: 75 MG, PER DAY

REACTIONS (2)
  - CARDIOMYOPATHY [None]
  - CARDIAC DISORDER [None]
